FAERS Safety Report 9493875 (Version 1)
Quarter: 2013Q3

REPORT INFORMATION
  Report Type: Spontaneous
  Country: CA (occurrence: CA)
  Receive Date: 20130902
  Receipt Date: 20130902
  Transmission Date: 20140515
  Serious: Yes (Hospitalization, Other)
  Sender: FDA-Public Use
  Company Number: CA-JNJFOC-20130811507

PATIENT
  Age: 33 Year
  Sex: Male

DRUGS (1)
  1. MOTRIN [Suspect]
     Indication: MIGRAINE
     Dosage: 1 PILL IN THE MORNING AND 1 PILL AT NIGHT
     Route: 048
     Dates: start: 201009

REACTIONS (3)
  - Intentional drug misuse [Recovering/Resolving]
  - Gastric perforation [Recovering/Resolving]
  - Haematemesis [Recovering/Resolving]
